FAERS Safety Report 19959271 (Version 1)
Quarter: 2021Q4

REPORT INFORMATION
  Report Type: Spontaneous
  Country: US (occurrence: US)
  Receive Date: 20211014
  Receipt Date: 20211014
  Transmission Date: 20220303
  Serious: Yes (Other)
  Sender: FDA-Public Use
  Company Number: None

PATIENT
  Age: 63 Year
  Sex: Male

DRUGS (6)
  1. REPATHA [Suspect]
     Active Substance: EVOLOCUMAB
     Indication: Hypokalaemia
     Dosage: ?          OTHER FREQUENCY:EVERY 14 DAYS;
     Route: 048
     Dates: start: 20200416
  2. ALFUZOSIN [Concomitant]
     Active Substance: ALFUZOSIN
  3. CHLORATHALID [Concomitant]
  4. DUTASTERIDE [Concomitant]
     Active Substance: DUTASTERIDE
  5. METOPROLOL TARTRATE [Concomitant]
     Active Substance: METOPROLOL TARTRATE
  6. POTASSIUM CHLORIDE [Concomitant]
     Active Substance: POTASSIUM CHLORIDE

REACTIONS (1)
  - Prostate cancer [None]

NARRATIVE: CASE EVENT DATE: 20211014
